FAERS Safety Report 7033569-1 (Version None)
Quarter: 2010Q4

REPORT INFORMATION
  Report Type: 
  Country: None (occurrence: None)
  Receive Date: 20101007
  Receipt Date: 20100924
  Transmission Date: 20110411
  Serious: Yes (Other)
  Sender: FDA-Public Use
  Company Number: PHHY2010US63844

PATIENT
  Age: 86 Year
  Sex: Female

DRUGS (11)
  1. FEMARA [Suspect]
     Dosage: UNK
  2. NIACIN [Suspect]
  3. ADVIL [Suspect]
  4. ERYTHROMYCIN [Suspect]
  5. LIPITOR [Suspect]
  6. COUMADIN [Suspect]
     Indication: THROMBOSIS
  7. ANTIHYPERTENSIVE DRUGS [Concomitant]
     Indication: HYPERTENSION
  8. WATER PILLS [Concomitant]
  9. EXPECTORANTS [Concomitant]
  10. POTASSIUM [Concomitant]
  11. CHOLESTEROL- AND TRIGLYCERIDE REDUCERS [Concomitant]
     Dosage: UNK

REACTIONS (7)
  - BREAST CANCER [None]
  - HAEMORRHAGE [None]
  - INJURY [None]
  - MALIGNANT TUMOUR EXCISION [None]
  - OEDEMA PERIPHERAL [None]
  - PHLEBECTOMY [None]
  - THROMBOSIS [None]
